FAERS Safety Report 5415686-2 (Version None)
Quarter: 2007Q3

REPORT INFORMATION
  Report Type: 
  Country: None (occurrence: None)
  Receive Date: 20070731
  Receipt Date: 20070531
  Transmission Date: 20080115
  Serious: No
  Sender: FDA-Public Use
  Company Number: US200706000212

PATIENT
  Age: 67 Year
  Sex: Male

DRUGS (3)
  1. BYETTA [Suspect]
     Indication: TYPE 2 DIABETES MELLITUS
     Dosage: 5 UG, 2/D, SUBCUTANEOUS   5 UG, DAILY (1/D), SUBCUTANEOUS
     Route: 058
     Dates: start: 20070401, end: 20070509
  2. BYETTA [Suspect]
     Indication: TYPE 2 DIABETES MELLITUS
     Dosage: 5 UG, 2/D, SUBCUTANEOUS   5 UG, DAILY (1/D), SUBCUTANEOUS
     Route: 058
     Dates: start: 20070510, end: 20070525
  3. METFORMIN HCL [Concomitant]

REACTIONS (5)
  - DECREASED APPETITE [None]
  - DYSPEPSIA [None]
  - MOOD ALTERED [None]
  - NAUSEA [None]
  - SENSATION OF HEAVINESS [None]
